FAERS Safety Report 15859071 (Version 1)
Quarter: 2019Q1

REPORT INFORMATION
  Report Type: Spontaneous
  Country: US (occurrence: US)
  Receive Date: 20190121
  Receipt Date: 20190121
  Transmission Date: 20190417
  Serious: No
  Sender: FDA-Public Use
  Company Number: None

PATIENT

DRUGS (1)
  1. ADCIRCA [Suspect]
     Active Substance: TADALAFIL
     Dates: start: 20180125

REACTIONS (3)
  - Insurance issue [None]
  - Inability to afford medication [None]
  - Therapy cessation [None]
